FAERS Safety Report 24426296 (Version 3)
Quarter: 2024Q4

REPORT INFORMATION
  Report Type: Report from Study
  Country: ES (occurrence: ES)
  Receive Date: 20241011
  Receipt Date: 20241021
  Transmission Date: 20250114
  Serious: No
  Sender: Unknown Manufacturer
  Company Number: ES-MIRUM PHARMACEUTICALS, INC.-ES-MIR-24-00884

PATIENT

DRUGS (1)
  1. MARALIXIBAT CHLORIDE [Suspect]
     Active Substance: MARALIXIBAT CHLORIDE
     Indication: Product used for unknown indication
     Dosage: UNK
     Route: 048
     Dates: end: 20240701

REACTIONS (1)
  - Drug ineffective [Unknown]
